FAERS Safety Report 5938126-3 (Version None)
Quarter: 2008Q4

REPORT INFORMATION
  Report Type: 
  Country: None (occurrence: None)
  Receive Date: 20081031
  Receipt Date: 20081021
  Transmission Date: 20090506
  Serious: Yes (Other)
  Sender: FDA-Public Use
  Company Number: US-PFIZER INC-2008088786

PATIENT
  Sex: Female

DRUGS (2)
  1. GEODON [Suspect]
     Dates: start: 20070801
  2. KLONOPIN [Concomitant]

REACTIONS (7)
  - CHOKING [None]
  - COUGH DECREASED [None]
  - DRY THROAT [None]
  - DYSPEPSIA [None]
  - DYSPHAGIA [None]
  - HERNIA [None]
  - MALAISE [None]
